FAERS Safety Report 4330896-3 (Version None)
Quarter: 2004Q1

REPORT INFORMATION
  Report Type: 
  Country: None (occurrence: None)
  Receive Date: 20040331
  Receipt Date: 20040318
  Transmission Date: 20041129
  Serious: Yes (Other)
  Sender: FDA-Public Use
  Company Number: 2004019098

PATIENT
  Age: 54 Year
  Sex: Female
  Weight: 58.514 kg

DRUGS (4)
  1. LIPITOR [Suspect]
     Indication: BLOOD CHOLESTEROL INCREASED
     Dosage: 80 MG (DAILY), ORAL
     Route: 048
  2. NEURONTIN [Suspect]
     Indication: NEURALGIA
     Dosage: 2400 MG (TID), ORAL
     Route: 048
     Dates: end: 20040316
  3. TOPIRAMATE [Concomitant]
  4. EZETIMIBE (EZETIMIBE) [Concomitant]

REACTIONS (22)
  - ABDOMINAL DISCOMFORT [None]
  - ABDOMINAL DISTENSION [None]
  - ACCIDENT AT WORK [None]
  - ANKLE FRACTURE [None]
  - ANOREXIA [None]
  - BACK PAIN [None]
  - CRYING [None]
  - DEPRESSION [None]
  - DIARRHOEA [None]
  - DRUG INEFFECTIVE [None]
  - FALL [None]
  - FATIGUE [None]
  - FEELING ABNORMAL [None]
  - HYPERHIDROSIS [None]
  - INSOMNIA [None]
  - INTERVERTEBRAL DISC PROTRUSION [None]
  - IRRITABILITY [None]
  - MALAISE [None]
  - MUSCLE CRAMP [None]
  - REFLEX SYMPATHETIC DYSTROPHY [None]
  - ROAD TRAFFIC ACCIDENT [None]
  - TREATMENT NONCOMPLIANCE [None]
